FAERS Safety Report 5819059-X (Version None)
Quarter: 2008Q3

REPORT INFORMATION
  Report Type: 
  Country: None (occurrence: None)
  Receive Date: 20080721
  Receipt Date: 20080721
  Transmission Date: 20090109
  Serious: Yes (Hospitalization, Other)
  Sender: FDA-Public Use
  Company Number: None

PATIENT
  Age: 66 Year
  Sex: Male
  Weight: 99.7913 kg

DRUGS (2)
  1. AVODART [Suspect]
     Indication: BENIGN PROSTATIC HYPERPLASIA
     Dosage: 0.5 MG ONCE DAILY PO
     Route: 048
     Dates: start: 20070805, end: 20080120
  2. FLOMAX [Suspect]
     Indication: BENIGN PROSTATIC HYPERPLASIA
     Dosage: 0.4 MG ONCE DAILY PO
     Route: 048
     Dates: start: 20070805, end: 20080120

REACTIONS (3)
  - BREAST NEOPLASM [None]
  - BREAST PAIN [None]
  - GYNAECOMASTIA [None]
